FAERS Safety Report 8910626 (Version 1)
Quarter: 2012Q4

REPORT INFORMATION
  Report Type: Spontaneous
  Country: GB (occurrence: None)
  Receive Date: 20121107
  Receipt Date: 20121107
  Transmission Date: 20130627
  Serious: Yes (Other)
  Sender: FDA-Public Use
  Company Number: AUR-APL-2012-04691

PATIENT
  Age: 46 Year
  Sex: Female

DRUGS (2)
  1. FLUOXETINE [Suspect]
     Indication: MAJOR DEPRESSION
     Route: 048
     Dates: start: 20121013, end: 20121018
  2. LEVOTHYROXINE [Concomitant]

REACTIONS (3)
  - Tremor [None]
  - Somnolence [None]
  - Seizure like phenomena [None]
